APPROVED DRUG PRODUCT: NICOTINE
Active Ingredient: NICOTINE
Strength: 21MG/24HR
Dosage Form/Route: FILM, EXTENDED RELEASE;TRANSDERMAL
Application: A074612 | Product #001
Applicant: DIFGEN PHARMACEUTICALS LLC
Approved: Oct 20, 1997 | RLD: No | RS: No | Type: OTC